FAERS Safety Report 12838903 (Version 1)
Quarter: 2016Q4

REPORT INFORMATION
  Report Type: Spontaneous
  Country: US (occurrence: US)
  Receive Date: 20161010
  Receipt Date: 20161010
  Transmission Date: 20170207
  Serious: Yes (Hospitalization)
  Sender: FDA-Public Use
  Company Number: None

PATIENT
  Age: 21 Year
  Sex: Male
  Weight: 231.9 kg

DRUGS (1)
  1. HUMULIN N [Suspect]
     Active Substance: INSULIN HUMAN
     Indication: DIABETES MELLITUS
     Dosage: ?          OTHER FREQUENCY:Q12HR TO Q8HR;?
     Route: 058
     Dates: start: 20160923, end: 20160929

REACTIONS (3)
  - Hypoglycaemia [None]
  - Therapy non-responder [None]
  - Product quality issue [None]

NARRATIVE: CASE EVENT DATE: 20160929
